FAERS Safety Report 4893850-9 (Version None)
Quarter: 2006Q1

REPORT INFORMATION
  Report Type: 
  Country: None (occurrence: None)
  Receive Date: 20060127
  Receipt Date: 20041213
  Transmission Date: 20060701
  Serious: No
  Sender: FDA-Public Use
  Company Number: US-GLAXOSMITHKLINE-A0537084A

PATIENT
  Sex: Male

DRUGS (7)
  1. WELLBUTRIN [Suspect]
     Indication: DRUG USE FOR UNKNOWN INDICATION
     Dosage: 75MG PER DAY
     Route: 048
  2. STRATTERA [Suspect]
     Indication: DRUG USE FOR UNKNOWN INDICATION
  3. ZIAGEN [Suspect]
     Indication: DRUG USE FOR UNKNOWN INDICATION
  4. TRUVADA [Suspect]
     Indication: DRUG USE FOR UNKNOWN INDICATION
  5. PREVACID [Suspect]
     Indication: DRUG USE FOR UNKNOWN INDICATION
  6. ZOLOFT [Suspect]
     Indication: DRUG USE FOR UNKNOWN INDICATION
  7. LEXAPRO [Suspect]
     Indication: DRUG USE FOR UNKNOWN INDICATION

REACTIONS (4)
  - DRUG INTERACTION [None]
  - DRY MOUTH [None]
  - INSOMNIA [None]
  - PARAESTHESIA [None]
